FAERS Safety Report 10221813 (Version 1)
Quarter: 2014Q2

REPORT INFORMATION
  Report Type: Spontaneous
  Country: DE (occurrence: DE)
  Receive Date: 20140606
  Receipt Date: 20140606
  Transmission Date: 20141212
  Serious: No
  Sender: FDA-Public Use
  Company Number: DE-BIOMARINAP-DE-2013-101268

PATIENT
  Age: 37 Year
  Sex: Male
  Weight: 60.5 kg

DRUGS (1)
  1. NAGLAZYME [Suspect]
     Indication: MUCOPOLYSACCHARIDOSIS VI
     Dosage: UNK, QW
     Route: 041

REACTIONS (7)
  - Hypokalaemia [Unknown]
  - Dizziness [Unknown]
  - Malaise [Unknown]
  - Fatigue [Unknown]
  - Abdominal pain upper [Unknown]
  - Visual impairment [Unknown]
  - Cardiac disorder [Unknown]
